FAERS Safety Report 23948796 (Version 4)
Quarter: 2025Q1

REPORT INFORMATION
  Report Type: Spontaneous
  Country: CA (occurrence: CA)
  Receive Date: 20240607
  Receipt Date: 20250131
  Transmission Date: 20250409
  Serious: Yes (Hospitalization)
  Sender: INTERCEPT PHARMACEUTICALS
  Company Number: CA-ADVANZ PHARMA-202309010436

PATIENT
  Age: 61 Year
  Sex: Female

DRUGS (3)
  1. OCALIVA [Suspect]
     Active Substance: OBETICHOLIC ACID
     Indication: Primary biliary cholangitis
     Route: 048
     Dates: start: 20230425
  2. OCALIVA [Suspect]
     Active Substance: OBETICHOLIC ACID
     Dosage: 10 MG, QD (OCALIVA)
     Route: 048
  3. URSODIOL [Concomitant]
     Active Substance: URSODIOL

REACTIONS (8)
  - Depression [Unknown]
  - Weight increased [Unknown]
  - Gamma-glutamyltransferase abnormal [Unknown]
  - Aspartate aminotransferase abnormal [Unknown]
  - Alanine aminotransferase abnormal [Unknown]
  - Drug ineffective [Unknown]
  - Product dose omission issue [Unknown]
  - Product dispensing issue [Unknown]

NARRATIVE: CASE EVENT DATE: 20231003
